FAERS Safety Report 8349051-5 (Version None)
Quarter: 2012Q2

REPORT INFORMATION
  Report Type: 
  Country: None (occurrence: None)
  Receive Date: 20120510
  Receipt Date: 20120501
  Transmission Date: 20120825
  Serious: Yes (Hospitalization)
  Sender: FDA-Public Use
  Company Number: IL-JNJFOC-20120502030

PATIENT
  Sex: Male
  Weight: 82 kg

DRUGS (4)
  1. PALIPERIDONE [Suspect]
     Route: 030
     Dates: start: 20120116
  2. PALIPERIDONE [Suspect]
     Indication: SCHIZOPHRENIA
     Route: 030
     Dates: start: 20120422
  3. CLONAZEPAM [Concomitant]
     Indication: PANIC DISORDER
     Dates: start: 20120103
  4. CLONAZEPAM [Concomitant]
     Dates: start: 20120422

REACTIONS (1)
  - PSYCHOTIC DISORDER [None]
